FAERS Safety Report 5202072-3 (Version None)
Quarter: 2007Q1

REPORT INFORMATION
  Report Type: 
  Country: None (occurrence: None)
  Receive Date: 20070103
  Receipt Date: 20061215
  Transmission Date: 20070707
  Serious: Yes (Hospitalization)
  Sender: FDA-Public Use
  Company Number: 151021ISR

PATIENT
  Age: 41 Year
  Sex: Female

DRUGS (6)
  1. FLUOROURACIL [Suspect]
     Dosage: 950 MG
     Route: 042
     Dates: start: 20060927, end: 20061018
  2. CYCLOPHOSPHAMIDE [Suspect]
     Dosage: 950 MG
     Route: 042
     Dates: start: 20060927, end: 20061018
  3. METOCLOPRAMIDE HYDROCHLORIDE [Suspect]
     Route: 048
     Dates: start: 20060927, end: 20061018
  4. EPIRUBICIN [Suspect]
     Dosage: 190 MG
     Route: 042
     Dates: start: 20060927, end: 20061018
  5. ONDANSETRON HCL [Suspect]
     Route: 048
     Dates: start: 20060927, end: 20061018
  6. METHYLPREDNISOLONE 16MG TAB [Concomitant]

REACTIONS (6)
  - BRONCHIOLITIS [None]
  - CRYPTOGENIC ORGANISING PNEUMONIA [None]
  - DYSPNOEA AT REST [None]
  - OBSTRUCTIVE AIRWAYS DISORDER [None]
  - ORTHOPNOEA [None]
  - RESTRICTIVE PULMONARY DISEASE [None]
